FAERS Safety Report 7022497-3 (Version None)
Quarter: 2010Q3

REPORT INFORMATION
  Report Type: 
  Country: None (occurrence: None)
  Receive Date: 20100930
  Receipt Date: 20100924
  Transmission Date: 20110219
  Serious: Yes (Life-Threatening)
  Sender: FDA-Public Use
  Company Number: JP-EISAI INC.-E2090-01303-SPO-JP

PATIENT
  Sex: Male

DRUGS (3)
  1. EXCEGRAN [Suspect]
     Indication: EPILEPSY
     Route: 048
     Dates: start: 20100801
  2. MUCODYNE [Concomitant]
     Route: 048
     Dates: end: 20100820
  3. MUCOSOLVAN [Concomitant]
     Route: 048
     Dates: end: 20100820

REACTIONS (2)
  - HYPONATRAEMIA [None]
  - RASH [None]
